FAERS Safety Report 18390345 (Version 1)
Quarter: 2020Q4

REPORT INFORMATION
  Report Type: Spontaneous
  Country: US (occurrence: US)
  Receive Date: 20201016
  Receipt Date: 20201016
  Transmission Date: 20210114
  Serious: Yes (Death)
  Sender: FDA-Public Use
  Company Number: US-ROCHE-2697017

PATIENT
  Sex: Male

DRUGS (12)
  1. ESBRIET [Suspect]
     Active Substance: PIRFENIDONE
     Indication: IDIOPATHIC PULMONARY FIBROSIS
     Dosage: 1 TABLET THRICE DAILY PO (ORAL)
     Route: 048
     Dates: start: 20200213
  2. TESTOSTERONE CYPIONATE. [Concomitant]
     Active Substance: TESTOSTERONE CYPIONATE
  3. LEVOTHYROXIN [Concomitant]
     Active Substance: LEVOTHYROXINE
  4. COLESTIPOL [Concomitant]
     Active Substance: COLESTIPOL
  5. MORTIN [Concomitant]
     Active Substance: SULFAMETHOXAZOLE\TRIMETHOPRIM
  6. VITAMIN A [Concomitant]
     Active Substance: VITAMIN A
  7. TAMSULOSIN [Concomitant]
     Active Substance: TAMSULOSIN
  8. FOLIC ACID. [Concomitant]
     Active Substance: FOLIC ACID
  9. OXYBUTYNIN. [Concomitant]
     Active Substance: OXYBUTYNIN CHLORIDE
  10. IBUPROFEN. [Concomitant]
     Active Substance: IBUPROFEN
  11. METOPROLOL TARTRATE. [Concomitant]
     Active Substance: METOPROLOL TARTRATE
  12. SULFASALAZINE DELAYED-RELEASE [Concomitant]
     Active Substance: SULFASALAZINE

REACTIONS (1)
  - Death [Fatal]
